FAERS Safety Report 7445321-3 (Version None)
Quarter: 2011Q2

REPORT INFORMATION
  Report Type: 
  Country: None (occurrence: None)
  Receive Date: 20110429
  Receipt Date: 20100409
  Transmission Date: 20111010
  Serious: No
  Sender: FDA-Public Use
  Company Number: A0854346A

PATIENT

DRUGS (2)
  1. TEMODAR [Suspect]
     Route: 048
  2. ZOFRAN [Suspect]
     Route: 065

REACTIONS (2)
  - RASH [None]
  - URTICARIA [None]
